FAERS Safety Report 4658121-4 (Version None)
Quarter: 2005Q2

REPORT INFORMATION
  Report Type: 
  Country: None (occurrence: None)
  Receive Date: 20050504
  Receipt Date: 20040624
  Transmission Date: 20051028
  Serious: Yes (Other)
  Sender: FDA-Public Use
  Company Number: PHEH2004US05363

PATIENT
  Age: 67 Year
  Sex: Female
  Weight: 124.7 kg

DRUGS (12)
  1. DIOVAN HCT [Suspect]
     Indication: HYPERTENSION
     Dosage: ONE TABLET TWICE DAILY, ORAL
     Route: 048
     Dates: start: 20040420
  2. GLUCOVANCE [Concomitant]
  3. DEMADEX [Concomitant]
  4. NEXIUM [Concomitant]
  5. CELEBREX [Concomitant]
  6. PRAVACHOL [Concomitant]
  7. ACTOS (PIOGLITAZONE, PIOGLITAZONE HYDROCHLORIDE) [Concomitant]
  8. TAZTIA XT [Concomitant]
  9. LOPID [Concomitant]
  10. TIAZAC [Concomitant]
  11. CLARINEX [Concomitant]
  12. GLUCOPHAGE [Concomitant]

REACTIONS (2)
  - BLOOD GLUCOSE INCREASED [None]
  - CONCOMITANT DISEASE AGGRAVATED [None]
